FAERS Safety Report 8069134-7 (Version None)
Quarter: 2012Q1

REPORT INFORMATION
  Report Type: 
  Country: None (occurrence: None)
  Receive Date: 20120125
  Receipt Date: 20120113
  Transmission Date: 20120608
  Serious: Yes (Hospitalization, Disabling)
  Sender: FDA-Public Use
  Company Number: GB-JNJFOC-20120105459

PATIENT
  Sex: Male

DRUGS (1)
  1. REMICADE [Suspect]
     Indication: RHEUMATOID ARTHRITIS
     Dosage: SINCE 2 YEARS
     Route: 042
     Dates: start: 20090101

REACTIONS (2)
  - PYODERMA GANGRENOSUM [None]
  - CELLULITIS [None]
